FAERS Safety Report 25744826 (Version 1)
Quarter: 2025Q3

REPORT INFORMATION
  Report Type: Spontaneous
  Country: US (occurrence: US)
  Receive Date: 20250901
  Receipt Date: 20250901
  Transmission Date: 20251020
  Serious: Yes (Death, Hospitalization, Other)
  Sender: ROCHE
  Company Number: US-ROCHE-10000372758

PATIENT
  Age: 69 Year
  Sex: Female

DRUGS (8)
  1. CELLCEPT [Suspect]
     Active Substance: MYCOPHENOLATE MOFETIL
     Indication: Pulmonary arterial hypertension
     Route: 048
     Dates: start: 202504
  2. OFEV [Suspect]
     Active Substance: NINTEDANIB
     Indication: Pulmonary arterial hypertension
     Route: 065
     Dates: start: 202504
  3. TYVASO DPI [Suspect]
     Active Substance: TREPROSTINIL
     Indication: Pulmonary arterial hypertension
     Route: 050
     Dates: start: 20241211, end: 20241226
  4. TYVASO DPI [Suspect]
     Active Substance: TREPROSTINIL
     Dosage: QID
     Route: 050
     Dates: start: 20241226, end: 20250101
  5. TYVASO DPI [Suspect]
     Active Substance: TREPROSTINIL
     Dosage: QID
     Route: 050
     Dates: start: 20250101, end: 20250101
  6. TYVASO DPI [Suspect]
     Active Substance: TREPROSTINIL
     Route: 050
  7. TYVASO DPI [Suspect]
     Active Substance: TREPROSTINIL
     Route: 050
     Dates: start: 202502
  8. OXYGEN [Concomitant]
     Active Substance: OXYGEN
     Dates: start: 20250113

REACTIONS (7)
  - Death [Fatal]
  - Right ventricular failure [Not Recovered/Not Resolved]
  - Pulmonary hypertension [Not Recovered/Not Resolved]
  - Oxygen saturation decreased [Recovering/Resolving]
  - Diarrhoea [Recovering/Resolving]
  - Peripheral swelling [Not Recovered/Not Resolved]
  - Dyspnoea exertional [Not Recovered/Not Resolved]
